FAERS Safety Report 6158177-6 (Version None)
Quarter: 2009Q2

REPORT INFORMATION
  Report Type: 
  Country: None (occurrence: None)
  Receive Date: 20090417
  Receipt Date: 20080702
  Transmission Date: 20091009
  Serious: No
  Sender: FDA-Public Use
  Company Number: US-AMGEN-US291665

PATIENT
  Sex: Male

DRUGS (6)
  1. SENSIPAR [Suspect]
     Indication: HYPERPARATHYROIDISM SECONDARY
     Route: 065
  2. TRANDATE [Concomitant]
     Route: 065
  3. DIOVAN [Concomitant]
     Route: 065
  4. MINOXIDIL [Concomitant]
     Route: 065
  5. LABETALOL HCL [Concomitant]
     Route: 065
  6. CARDURA [Concomitant]
     Route: 065

REACTIONS (2)
  - BLOOD PARATHYROID HORMONE INCREASED [None]
  - BLOOD PRESSURE INCREASED [None]
